FAERS Safety Report 5737310-1 (Version None)
Quarter: 2008Q2

REPORT INFORMATION
  Report Type: 
  Country: None (occurrence: None)
  Receive Date: 20080512
  Receipt Date: 20080512
  Transmission Date: 20081010
  Serious: Yes (Death, Hospitalization)
  Sender: FDA-Public Use
  Company Number: None

PATIENT
  Sex: Female
  Weight: 88.4514 kg

DRUGS (1)
  1. DIGOXIN [Suspect]
     Indication: ATRIAL FIBRILLATION
     Dosage: 3 TABS 1ST DAY PO; 1 TAB DAILY PO
     Route: 048
     Dates: start: 20080313, end: 20080409

REACTIONS (9)
  - ABNORMAL BEHAVIOUR [None]
  - CONFUSIONAL STATE [None]
  - DIARRHOEA [None]
  - HALLUCINATIONS, MIXED [None]
  - HYPOTENSION [None]
  - INCOHERENT [None]
  - INCONTINENCE [None]
  - SOMNOLENCE [None]
  - THINKING ABNORMAL [None]
